FAERS Safety Report 7590313-7 (Version None)
Quarter: 2011Q2

REPORT INFORMATION
  Report Type: 
  Country: None (occurrence: None)
  Receive Date: 20110627
  Receipt Date: 20110609
  Transmission Date: 20111010
  Serious: Yes (Other)
  Sender: FDA-Public Use
  Company Number: JHP201100241

PATIENT
  Age: 60 Year
  Sex: Male

DRUGS (1)
  1. DANTRIUM [Suspect]
     Dosage: 75 MG, DAILY, ORAL
     Route: 048

REACTIONS (1)
  - CHOLECYSTITIS [None]
